FAERS Safety Report 10181104 (Version 1)
Quarter: 2014Q2

REPORT INFORMATION
  Report Type: Spontaneous
  Country: US (occurrence: US)
  Receive Date: 20140519
  Receipt Date: 20140519
  Transmission Date: 20141212
  Serious: No
  Sender: FDA-Public Use
  Company Number: US-AMGEN INC.-USASP2014024292

PATIENT
  Sex: Female

DRUGS (2)
  1. PROLIA [Suspect]
     Indication: PRODUCT USED FOR UNKNOWN INDICATION
     Dosage: UNK
     Route: 065
     Dates: start: 2012
  2. COUMADIN                           /00014802/ [Concomitant]

REACTIONS (5)
  - Influenza like illness [Unknown]
  - Malaise [Unknown]
  - Headache [Unknown]
  - Nasopharyngitis [Unknown]
  - Hypersensitivity [Unknown]
